FAERS Safety Report 15341398 (Version 1)
Quarter: 2018Q3

REPORT INFORMATION
  Report Type: Spontaneous
  Country: DE (occurrence: DE)
  Receive Date: 20180901
  Receipt Date: 20180901
  Transmission Date: 20181010
  Serious: Yes (Other)
  Sender: FDA-Public Use
  Company Number: DE-SUN PHARMACEUTICAL INDUSTRIES LTD-2018R1-182850

PATIENT
  Age: 30 Year
  Sex: Male

DRUGS (14)
  1. OLANZAPINE. [Suspect]
     Active Substance: OLANZAPINE
     Indication: PRODUCT USED FOR UNKNOWN INDICATION
     Dosage: 10 MG, DAILY
     Route: 048
     Dates: start: 20171227, end: 20171230
  2. OLANZAPINE. [Suspect]
     Active Substance: OLANZAPINE
     Dosage: 7.5 MG, DAILY
     Route: 048
     Dates: start: 20171231, end: 20180102
  3. AMISULPRIDE [Suspect]
     Active Substance: AMISULPRIDE
     Dosage: 900 MG, DAILY
     Route: 048
     Dates: start: 20171210, end: 20171215
  4. AMISULPRIDE [Suspect]
     Active Substance: AMISULPRIDE
     Dosage: 600 MG, DAILY
     Route: 048
     Dates: start: 20180111
  5. OLANZAPINE. [Suspect]
     Active Substance: OLANZAPINE
     Dosage: 10 MG, DAILY
     Route: 048
     Dates: start: 20171208, end: 20171211
  6. OLANZAPINE. [Suspect]
     Active Substance: OLANZAPINE
     Dosage: 12.5 MG, DAILY
     Route: 048
     Dates: start: 20171224, end: 20171226
  7. OLANZAPINE. [Suspect]
     Active Substance: OLANZAPINE
     Dosage: 5 MG, DAILY
     Route: 048
     Dates: start: 20180103
  8. AMISULPRIDE [Suspect]
     Active Substance: AMISULPRIDE
     Dosage: 200 MG, DAILY
     Route: 048
     Dates: start: 20180119
  9. AMISULPRIDE [Suspect]
     Active Substance: AMISULPRIDE
     Indication: PRODUCT USED FOR UNKNOWN INDICATION
     Route: 048
     Dates: start: 20180104, end: 20180110
  10. AMISULPRIDE [Suspect]
     Active Substance: AMISULPRIDE
     Dosage: 1000 MG, DAILY
     Route: 048
     Dates: start: 20171216, end: 20180103
  11. AMISULPRIDE [Suspect]
     Active Substance: AMISULPRIDE
     Dosage: 300 MG, DAILY
     Route: 048
     Dates: start: 20180117, end: 20180118
  12. AMISULPRIDE [Suspect]
     Active Substance: AMISULPRIDE
     Dosage: 800 MG, DAILY
     Route: 048
     Dates: start: 20171101, end: 20171209
  13. OLANZAPINE. [Suspect]
     Active Substance: OLANZAPINE
     Dosage: 15 MG, DAILY
     Route: 065
     Dates: start: 20171212, end: 20171223
  14. AMISULPRIDE [Suspect]
     Active Substance: AMISULPRIDE
     Dosage: 400 MG, DAILY
     Route: 048
     Dates: start: 20180112, end: 20180116

REACTIONS (3)
  - Galactorrhoea [Recovered/Resolved]
  - Breast engorgement [Recovered/Resolved]
  - Breast pain [Recovered/Resolved]

NARRATIVE: CASE EVENT DATE: 20180103
